FAERS Safety Report 9601160 (Version 2)
Quarter: 2014Q1

REPORT INFORMATION
  Report Type: Report from Study
  Country: PE (occurrence: PE)
  Receive Date: 20131005
  Receipt Date: 20140326
  Transmission Date: 20141002
  Serious: No
  Sender: FDA-Public Use
  Company Number: PE-ROCHE-1285425

PATIENT
  Age: 35 Year
  Sex: Female

DRUGS (1)
  1. HERCEPTIN [Suspect]
     Indication: BREAST CANCER
     Route: 042
     Dates: start: 20120802, end: 20130918

REACTIONS (2)
  - Syncope [Recovered/Resolved]
  - Chest pain [Recovered/Resolved]
